FAERS Safety Report 17808608 (Version 1)
Quarter: 2020Q2

REPORT INFORMATION
  Report Type: Spontaneous
  Country: ES (occurrence: ES)
  Receive Date: 20200520
  Receipt Date: 20200520
  Transmission Date: 20200714
  Serious: Yes (Death)
  Sender: FDA-Public Use
  Company Number: ES-PFIZER INC-2020198882

PATIENT
  Age: 26 Year
  Sex: Female

DRUGS (7)
  1. HYDROXYCHLOROQUINE [Suspect]
     Active Substance: HYDROXYCHLOROQUINE
     Indication: COVID-19 PNEUMONIA
     Dosage: 400 MG, 1X/DAY
     Route: 048
     Dates: start: 20200323, end: 20200401
  2. ENOXAPARIN [Suspect]
     Active Substance: ENOXAPARIN
     Dosage: 40 MG, 1X/DAY
     Route: 058
     Dates: start: 20200327
  3. TOCILIZUMAB. [Suspect]
     Active Substance: TOCILIZUMAB
     Indication: COVID-19
  4. DEXAMETHASONE. [Suspect]
     Active Substance: DEXAMETHASONE
     Dosage: 20 MG, 1X/DAY
     Route: 042
     Dates: start: 20200328, end: 20200401
  5. DEXKETOPROFEN [Suspect]
     Active Substance: DEXKETOPROFEN
     Dosage: 25 MG, 3X/DAY (EVERY 8 HOURS)
     Route: 042
     Dates: start: 20200327, end: 20200401
  6. TOCILIZUMAB. [Suspect]
     Active Substance: TOCILIZUMAB
     Indication: SEVERE ACUTE RESPIRATORY SYNDROME
     Dosage: 600 MG, SINGLE
     Route: 042
     Dates: start: 20200329, end: 20200329
  7. AZITHROMYCIN ANHYDROUS. [Suspect]
     Active Substance: AZITHROMYCIN ANHYDROUS
     Indication: COVID-19 PNEUMONIA
     Dosage: 500 MG, 1X/DAY
     Route: 048
     Dates: start: 20200323, end: 20200324

REACTIONS (3)
  - Product use in unapproved indication [Unknown]
  - Coagulopathy [Fatal]
  - Off label use [Unknown]

NARRATIVE: CASE EVENT DATE: 20200323
